FAERS Safety Report 15576057 (Version 2)
Quarter: 2018Q4

REPORT INFORMATION
  Report Type: Report from Study
  Country: PT (occurrence: PT)
  Receive Date: 20181101
  Receipt Date: 20181204
  Transmission Date: 20190205
  Serious: Yes (Hospitalization, Other)
  Sender: FDA-Public Use
  Company Number: PT-CELGENEUS-PRT-20181009352

PATIENT
  Age: 71 Year
  Sex: Male
  Weight: 101.2 kg

DRUGS (19)
  1. CC-5013 [Suspect]
     Active Substance: LENALIDOMIDE
     Indication: DIFFUSE LARGE B-CELL LYMPHOMA
     Dosage: 15 MILLIGRAM
     Route: 048
     Dates: start: 20170103
  2. DOXORUBICIN [Suspect]
     Active Substance: DOXORUBICIN
     Dosage: 50 MILLIGRAM/SQ. METER
     Route: 041
     Dates: start: 20170418, end: 20170418
  3. ALENDRONIC ACID+COLECALCIFEROL [Concomitant]
     Active Substance: ALENDRONATE SODIUM\CHOLECALCIFEROL
     Indication: OSTEITIS DEFORMANS
     Dosage: 70 MG + 5600 IU
     Route: 048
     Dates: start: 2013
  4. DOXORUBICIN [Suspect]
     Active Substance: DOXORUBICIN
     Indication: DIFFUSE LARGE B-CELL LYMPHOMA
     Dosage: 50 MILLIGRAM/SQ. METER
     Route: 041
     Dates: start: 20170103
  5. CYCLOPHOSPHAMIDE. [Suspect]
     Active Substance: CYCLOPHOSPHAMIDE
     Dosage: 750 MILLIGRAM/SQ. METER
     Route: 041
     Dates: start: 20170418, end: 20170418
  6. LOSARTAN AND HYDROCHLOROTHIAZIDE [Concomitant]
     Active Substance: HYDROCHLOROTHIAZIDE\LOSARTAN POTASSIUM
     Indication: HYPERTENSION
     Route: 048
     Dates: start: 20161227
  7. RITUXIMAB. [Suspect]
     Active Substance: RITUXIMAB
     Indication: DIFFUSE LARGE B-CELL LYMPHOMA
     Dosage: 375 MILLIGRAM/SQ. METER
     Route: 041
     Dates: start: 20170103
  8. VINCRISTINE [Suspect]
     Active Substance: VINCRISTINE
     Indication: DIFFUSE LARGE B-CELL LYMPHOMA
     Dosage: 1.4 MILLIGRAM/SQ. METER
     Route: 041
     Dates: start: 20170103
  9. PREDNISONE. [Suspect]
     Active Substance: PREDNISONE
     Dosage: 100 MILLIGRAM
     Route: 048
     Dates: start: 20170418, end: 20170422
  10. FLUTICASONE+SALMETEROL [Concomitant]
     Active Substance: FLUTICASONE PROPIONATE\SALMETEROL XINAFOATE
     Indication: BRONCHITIS
     Dosage: 250/25 MG
     Route: 055
     Dates: start: 2000
  11. ACETYLSALICYLIC ACID [Concomitant]
     Active Substance: ASPIRIN
     Indication: CARDIOVASCULAR EVENT PROPHYLAXIS
     Route: 048
     Dates: start: 20170103
  12. CC-5013 [Suspect]
     Active Substance: LENALIDOMIDE
     Dosage: 15 MILLIGRAM
     Route: 048
     Dates: start: 20170418, end: 20170501
  13. CYCLOPHOSPHAMIDE. [Suspect]
     Active Substance: CYCLOPHOSPHAMIDE
     Indication: DIFFUSE LARGE B-CELL LYMPHOMA
     Dosage: 750 MILLIGRAM/SQ. METER
     Route: 041
     Dates: start: 20170103
  14. POVIDONE [Concomitant]
     Active Substance: POVIDONE
     Indication: CATARACT
     Dosage: 2 DROPS
     Route: 047
     Dates: start: 2014
  15. OMEPRAZOLE. [Concomitant]
     Active Substance: OMEPRAZOLE
     Indication: GASTRITIS PROPHYLAXIS
     Route: 048
     Dates: start: 20170103
  16. ALLOPURINOL. [Concomitant]
     Active Substance: ALLOPURINOL
     Indication: HYPERURICAEMIA
     Dosage: 300 MILLIGRAM
     Route: 048
     Dates: start: 2000
  17. RITUXIMAB. [Suspect]
     Active Substance: RITUXIMAB
     Dosage: 375 MILLIGRAM/SQ. METER
     Route: 041
     Dates: start: 20170418, end: 20170418
  18. VINCRISTINE [Suspect]
     Active Substance: VINCRISTINE
     Dosage: 1.4 MILLIGRAM/SQ. METER
     Route: 041
     Dates: start: 20170418, end: 20170418
  19. PREDNISONE. [Suspect]
     Active Substance: PREDNISONE
     Indication: DIFFUSE LARGE B-CELL LYMPHOMA
     Dosage: 100 MILLIGRAM
     Route: 048
     Dates: start: 20170103

REACTIONS (2)
  - Transitional cell carcinoma [Recovered/Resolved]
  - Prostate cancer [Not Recovered/Not Resolved]

NARRATIVE: CASE EVENT DATE: 20180718
